FAERS Safety Report 8436006-5 (Version None)
Quarter: 2012Q2

REPORT INFORMATION
  Report Type: 
  Country: None (occurrence: None)
  Receive Date: 20120614
  Receipt Date: 20120606
  Transmission Date: 20120825
  Serious: Yes (Death, Hospitalization)
  Sender: FDA-Public Use
  Company Number: GB-SANOFI-AVENTIS-2012SA041355

PATIENT
  Sex: Male

DRUGS (8)
  1. TAXOTERE [Suspect]
     Route: 041
     Dates: start: 20120425, end: 20120425
  2. INVESTIGATIONAL DRUG [Suspect]
     Indication: NON-SMALL CELL LUNG CANCER STAGE IV
     Dates: start: 20120312
  3. INVESTIGATIONAL DRUG [Suspect]
     Dates: end: 20120425
  4. OMEPRAZOLE [Concomitant]
  5. LOPERAMIDE [Concomitant]
  6. DEXAMETHASONE [Concomitant]
  7. TAXOTERE [Suspect]
     Indication: NON-SMALL CELL LUNG CANCER STAGE IV
     Route: 041
     Dates: start: 20120312, end: 20120312
  8. ACETAMINOPHEN [Concomitant]

REACTIONS (3)
  - OEDEMA PERIPHERAL [None]
  - DYSPNOEA [None]
  - DEATH [None]
